FAERS Safety Report 10143559 (Version 1)
Quarter: 2014Q2

REPORT INFORMATION
  Report Type: Spontaneous
  Country: FR (occurrence: FR)
  Receive Date: 20140430
  Receipt Date: 20140430
  Transmission Date: 20141212
  Serious: Yes (Other)
  Sender: FDA-Public Use
  Company Number: FR-GALDERMA-FR14001503

PATIENT
  Sex: Female

DRUGS (1)
  1. CURASPOT [Suspect]
     Indication: ACNE
     Dosage: 5%
     Route: 061
     Dates: start: 20140418, end: 20140419

REACTIONS (4)
  - Localised oedema [Not Recovered/Not Resolved]
  - Swelling face [Not Recovered/Not Resolved]
  - Pain of skin [Not Recovered/Not Resolved]
  - Skin burning sensation [Not Recovered/Not Resolved]
